FAERS Safety Report 6585120-8 (Version None)
Quarter: 2010Q1

REPORT INFORMATION
  Report Type: 
  Country: None (occurrence: None)
  Receive Date: 20100217
  Receipt Date: 20100205
  Transmission Date: 20100710
  Serious: Yes (Death, Other)
  Sender: FDA-Public Use
  Company Number: JP-PFIZER INC-2010017550

PATIENT

DRUGS (2)
  1. ZYVOX [Suspect]
     Indication: ENDOCARDITIS
     Dosage: UNK
  2. VANCOMYCIN [Concomitant]
     Indication: ENDOCARDITIS

REACTIONS (1)
  - DEATH [None]
